FAERS Safety Report 25686391 (Version 1)
Quarter: 2025Q3

REPORT INFORMATION
  Report Type: Spontaneous
  Country: CN (occurrence: CN)
  Receive Date: 20250815
  Receipt Date: 20250815
  Transmission Date: 20251020
  Serious: Yes (Other)
  Sender: PFIZER
  Company Number: CN-PFIZER INC-PV202500097522

PATIENT
  Age: 6 Decade
  Sex: Female

DRUGS (8)
  1. PACLITAXEL [Suspect]
     Active Substance: PACLITAXEL
     Indication: Squamous cell carcinoma of the cervix
     Route: 042
  2. PACLITAXEL [Suspect]
     Active Substance: PACLITAXEL
     Route: 042
  3. CISPLATIN [Suspect]
     Active Substance: CISPLATIN
     Indication: Squamous cell carcinoma of the cervix
     Route: 042
  4. CISPLATIN [Suspect]
     Active Substance: CISPLATIN
     Route: 042
  5. CISPLATIN [Suspect]
     Active Substance: CISPLATIN
     Route: 042
  6. CISPLATIN [Suspect]
     Active Substance: CISPLATIN
     Route: 042
  7. TISLELIZUMAB [Suspect]
     Active Substance: TISLELIZUMAB
     Indication: Squamous cell carcinoma of the cervix
     Route: 042
  8. TISLELIZUMAB [Suspect]
     Active Substance: TISLELIZUMAB
     Route: 042

REACTIONS (2)
  - Mucosal erosion [Recovered/Resolved]
  - Rash [Recovered/Resolved]

NARRATIVE: CASE EVENT DATE: 20240301
